FAERS Safety Report 4589324-5 (Version None)
Quarter: 2005Q1

REPORT INFORMATION
  Report Type: 
  Country: None (occurrence: None)
  Receive Date: 20050217
  Receipt Date: 20050217
  Transmission Date: 20050727
  Serious: Yes (Hospitalization)
  Sender: FDA-Public Use
  Company Number: None

PATIENT
  Age: 28 Year
  Sex: Female
  Weight: 88.4514 kg

DRUGS (1)
  1. MAGNESIUM / D5W  6GM/100ML D5W [Suspect]

REACTIONS (2)
  - CAESAREAN SECTION [None]
  - MEDICATION ERROR [None]
